FAERS Safety Report 15486144 (Version 1)
Quarter: 2018Q4

REPORT INFORMATION
  Report Type: Spontaneous
  Country: CO (occurrence: CO)
  Receive Date: 20181011
  Receipt Date: 20181011
  Transmission Date: 20190205
  Serious: Yes (Other)
  Sender: FDA-Public Use
  Company Number: CO-REGENERON PHARMACEUTICALS, INC.-2018-40126

PATIENT

DRUGS (4)
  1. EYLEA [Suspect]
     Active Substance: AFLIBERCEPT
     Indication: MACULAR OEDEMA
     Dosage: Q12WK, RIGHT EYE
  2. EYLEA [Suspect]
     Active Substance: AFLIBERCEPT
     Dosage: 1 DF, ONCE, RIGHT EYE; LAST INJECTION PRIOR TO THE EVENT
     Dates: start: 20180711, end: 20180711
  3. EYLEA [Suspect]
     Active Substance: AFLIBERCEPT
     Indication: RETINAL VEIN OCCLUSION
     Dosage: 1 DF, Q1MON, RIGHT EYE
  4. EYLEA [Suspect]
     Active Substance: AFLIBERCEPT
     Dosage: 1 DF, ONCE; RIGHT EYE
     Dates: start: 201804, end: 201804

REACTIONS (2)
  - Cerebral ischaemia [Unknown]
  - Macular degeneration [Unknown]

NARRATIVE: CASE EVENT DATE: 20180716
